FAERS Safety Report 4939882-3 (Version None)
Quarter: 2006Q1

REPORT INFORMATION
  Report Type: 
  Country: None (occurrence: None)
  Receive Date: 20060310
  Receipt Date: 19950801
  Transmission Date: 20060701
  Serious: Yes (Hospitalization)
  Sender: FDA-Public Use
  Company Number: US-GLAXOSMITHKLINE-A0010996A

PATIENT
  Age: 66 Year

DRUGS (4)
  1. FORTAZ [Suspect]
     Route: 042
  2. CEFAZOLIN [Suspect]
     Indication: INFECTION PROPHYLAXIS
     Route: 042
  3. CEPHALEXIN [Suspect]
  4. DEXAMETHASONE [Concomitant]

REACTIONS (1)
  - MENINGITIS ASEPTIC [None]
